FAERS Safety Report 4996150-1 (Version None)
Quarter: 2006Q2

REPORT INFORMATION
  Report Type: 
  Country: None (occurrence: None)
  Receive Date: 20060504
  Receipt Date: 20060427
  Transmission Date: 20061013
  Serious: Yes (Other)
  Sender: FDA-Public Use
  Company Number: 2004033553

PATIENT
  Age: 23 Year
  Sex: Female
  Weight: 52 kg

DRUGS (17)
  1. ZOLOFT [Suspect]
     Indication: BIPOLAR DISORDER
     Dosage: 50 MG (50 MG, 1 IN 1 D), ORAL
     Route: 048
     Dates: start: 19990101
  2. ZOLOFT [Suspect]
     Indication: BIPOLAR I DISORDER
     Dosage: 50 MG (50 MG, 1 IN 1 D), ORAL
     Route: 048
     Dates: start: 19990101
  3. ZOLOFT [Suspect]
     Indication: DEPRESSION
     Dosage: 50 MG (50 MG, 1 IN 1 D), ORAL
     Route: 048
     Dates: start: 19990101
  4. PROVERA [Suspect]
     Indication: UTERINE HAEMORRHAGE
     Dosage: 20 MG (10 MG, 2 IN 1 D), ORAL
     Route: 048
     Dates: start: 20050810
  5. TINIDAZOLE/TIOCONAZOLE               (TIOCONAZOLE, TINIDAZOLE) [Suspect]
     Indication: VAGINITIS BACTERIAL
     Dosage: VAGINAL
     Route: 067
     Dates: start: 20050825
  6. CLONAZEPAM [Suspect]
     Indication: BIPOLAR DISORDER
     Dosage: 3 MG (3 MG, 1 IN 1 D), ORAL
     Route: 048
     Dates: start: 20050803
  7. DIANE                  (CYPROTERONE ACETATE, ETHINYLESTRADIOL) [Suspect]
     Indication: ORAL CONTRACEPTION
     Dosage: UNKNOWN (DAILY), ORAL
     Route: 048
     Dates: start: 20051001
  8. SYNTHROID [Concomitant]
  9. PIROXICAM [Concomitant]
  10. ROHYPNOL (FLUNITRAZEPAM) [Concomitant]
  11. L-LYSINE (LYSINE) [Concomitant]
  12. AMPLICTIL (CHLORPROMAZINE) [Concomitant]
  13. HERBAL PREPARATION (HERBAL HYDROCHLORIDE) [Concomitant]
  14. BETAGAN [Concomitant]
  15. ALL OTHER THERAPEUTIC PRODUCTS [Concomitant]
  16. MIDAZOLAM HCL [Concomitant]
  17. VITAMINS (VITAMINS) [Concomitant]

REACTIONS (34)
  - ABORTION [None]
  - AGGRESSION [None]
  - AGITATION [None]
  - ALCOHOLISM [None]
  - AMENORRHOEA [None]
  - AMNESIA [None]
  - ANOREXIA [None]
  - ANXIETY [None]
  - BLOOD PRESSURE DECREASED [None]
  - CRYING [None]
  - DIZZINESS [None]
  - DYSKINESIA [None]
  - EUPHORIC MOOD [None]
  - EYELID PTOSIS [None]
  - GALACTORRHOEA [None]
  - HEADACHE [None]
  - HORMONE LEVEL ABNORMAL [None]
  - INAPPROPRIATE SCHEDULE OF DRUG ADMINISTRATION [None]
  - INFLUENZA LIKE ILLNESS [None]
  - INSOMNIA [None]
  - IRRITABILITY [None]
  - MENSTRUATION IRREGULAR [None]
  - MOOD ALTERED [None]
  - NAUSEA [None]
  - NECK PAIN [None]
  - SEBORRHOEIC DERMATITIS [None]
  - SINUSITIS [None]
  - SOMNOLENCE [None]
  - SUICIDE ATTEMPT [None]
  - TACHYCARDIA [None]
  - TREATMENT NONCOMPLIANCE [None]
  - TREMOR [None]
  - VAGINAL HAEMORRHAGE [None]
  - WEIGHT DECREASED [None]
